FAERS Safety Report 20882231 (Version 2)
Quarter: 2022Q2

REPORT INFORMATION
  Report Type: Spontaneous
  Country: IT (occurrence: IT)
  Receive Date: 20220527
  Receipt Date: 20220620
  Transmission Date: 20220721
  Serious: Yes (Hospitalization, Other)
  Sender: FDA-Public Use
  Company Number: IT-ASPEN-GLO2022IT002897

PATIENT

DRUGS (5)
  1. LEUKERAN [Suspect]
     Active Substance: CHLORAMBUCIL
     Indication: Product used for unknown indication
     Dosage: 10 MG, QD
     Route: 048
     Dates: start: 20220329, end: 20220511
  2. ENOXAPARIN SODIUM [Concomitant]
     Active Substance: ENOXAPARIN SODIUM
     Indication: Thrombosis
     Dosage: 6000 IU, BID
     Route: 058
     Dates: start: 20220312
  3. DEXAMETHASONE [Concomitant]
     Active Substance: DEXAMETHASONE
     Indication: Cancer pain
     Dosage: UNK
     Route: 065
  4. ORAMORF [Concomitant]
     Indication: Cancer pain
     Dosage: UNK UNK
     Route: 065
     Dates: end: 20220512
  5. OXYCONTIN [Concomitant]
     Active Substance: OXYCODONE HYDROCHLORIDE
     Indication: Cancer pain
     Dosage: 50 MG, BID
     Route: 048
     Dates: start: 20220512

REACTIONS (3)
  - Pyrexia [Recovered/Resolved]
  - Back pain [Not Recovered/Not Resolved]
  - Pneumonia [Recovered/Resolved]

NARRATIVE: CASE EVENT DATE: 20220514
